FAERS Safety Report 15545196 (Version 2)
Quarter: 2019Q1

REPORT INFORMATION
  Report Type: Spontaneous
  Country: GB (occurrence: GB)
  Receive Date: 20181024
  Receipt Date: 20190223
  Transmission Date: 20190417
  Serious: Yes (Other)
  Sender: FDA-Public Use
  Company Number: GB-ACCORD-073843

PATIENT
  Age: 68 Year
  Sex: Female
  Weight: 53.97 kg

DRUGS (3)
  1. CALCIUM LACTATE/CALCIUM PHOSPHATE/ERGOCALCIFEROL [Concomitant]
  2. FOLIC ACID. [Concomitant]
     Active Substance: FOLIC ACID
  3. QUETIAPINE. [Suspect]
     Active Substance: QUETIAPINE
     Indication: ANXIETY
     Route: 048
     Dates: start: 20170423, end: 20170505

REACTIONS (5)
  - Visual acuity reduced [Not Recovered/Not Resolved]
  - Diplopia [Unknown]
  - Eye pain [Not Recovered/Not Resolved]
  - Insomnia [Not Recovered/Not Resolved]
  - Extraocular muscle disorder [Unknown]

NARRATIVE: CASE EVENT DATE: 20170426
